FAERS Safety Report 9648289 (Version 2)
Quarter: 2014Q1

REPORT INFORMATION
  Report Type: Report from Study
  Country: US (occurrence: US)
  Receive Date: 20131028
  Receipt Date: 20140113
  Transmission Date: 20141002
  Serious: Yes (Other)
  Sender: FDA-Public Use
  Company Number: US-JNJFOC-20131013185

PATIENT
  Sex: 0

DRUGS (2)
  1. REMICADE [Suspect]
     Indication: COLITIS ULCERATIVE
     Route: 042
  2. REMICADE [Suspect]
     Indication: ARTHRITIS
     Route: 042

REACTIONS (3)
  - Colitis ulcerative [Recovered/Resolved]
  - Arthralgia [Recovering/Resolving]
  - Adverse drug reaction [Unknown]
